FAERS Safety Report 23402557 (Version 1)
Quarter: 2024Q1

REPORT INFORMATION
  Report Type: Report from Study
  Country: US (occurrence: US)
  Receive Date: 20240115
  Receipt Date: 20240115
  Transmission Date: 20240410
  Serious: Yes (Hospitalization)
  Sender: FDA-Public Use
  Company Number: US-002147023-NVSC2024US008324

PATIENT
  Sex: Male

DRUGS (2)
  1. COSENTYX [Suspect]
     Active Substance: SECUKINUMAB
     Indication: Psoriasis
     Dosage: 300 MG
     Route: 065
  2. COSENTYX [Suspect]
     Active Substance: SECUKINUMAB
     Dosage: 300 MG
     Route: 065

REACTIONS (9)
  - Cellulitis [Unknown]
  - COVID-19 [Unknown]
  - Nasal congestion [Unknown]
  - Headache [Unknown]
  - Cough [Unknown]
  - Sneezing [Unknown]
  - Pyrexia [Unknown]
  - Chills [Unknown]
  - Ageusia [Unknown]
